FAERS Safety Report 24352557 (Version 1)
Quarter: 2024Q3

REPORT INFORMATION
  Report Type: Spontaneous
  Country: NZ (occurrence: NZ)
  Receive Date: 20240923
  Receipt Date: 20240923
  Transmission Date: 20241017
  Serious: No
  Sender: ROCHE
  Company Number: NZ-ROCHE-3420617

PATIENT
  Age: 40 Year
  Sex: Female
  Weight: 166.0 kg

DRUGS (14)
  1. HERCEPTIN [Suspect]
     Active Substance: TRASTUZUMAB
     Indication: Breast cancer
     Dosage: LOADING DOSE 1328MG, CYCLE 1
     Route: 065
     Dates: start: 20230815
  2. HERCEPTIN [Suspect]
     Active Substance: TRASTUZUMAB
     Dosage: CYCLE 2
     Route: 065
     Dates: start: 20230905
  3. HERCEPTIN [Suspect]
     Active Substance: TRASTUZUMAB
     Route: 065
     Dates: start: 20230926
  4. HERCEPTIN [Suspect]
     Active Substance: TRASTUZUMAB
     Route: 065
     Dates: start: 20231017
  5. HERCEPTIN [Suspect]
     Active Substance: TRASTUZUMAB
     Route: 065
  6. PERTUZUMAB [Suspect]
     Active Substance: PERTUZUMAB
     Indication: Breast cancer
     Dosage: LOADING DOSE 1328MG,CYCLE 1
     Route: 065
     Dates: start: 20230815
  7. PERTUZUMAB [Suspect]
     Active Substance: PERTUZUMAB
     Route: 065
     Dates: start: 20230905
  8. PERTUZUMAB [Suspect]
     Active Substance: PERTUZUMAB
     Route: 065
     Dates: start: 20230926
  9. PERTUZUMAB [Suspect]
     Active Substance: PERTUZUMAB
     Route: 065
     Dates: start: 20231017
  10. PACLITAXEL [Suspect]
     Active Substance: PACLITAXEL
     Indication: Breast cancer
     Dosage: CYCLE 2
     Route: 065
     Dates: start: 20230905
  11. PACLITAXEL [Suspect]
     Active Substance: PACLITAXEL
     Dosage: CYCLE 3
     Route: 065
     Dates: start: 20230926
  12. PACLITAXEL [Suspect]
     Active Substance: PACLITAXEL
     Route: 065
     Dates: start: 20231017
  13. ACETAMINOPHEN [Concomitant]
     Active Substance: ACETAMINOPHEN
  14. DEXAMETHASONE [Concomitant]
     Active Substance: DEXAMETHASONE
     Route: 048

REACTIONS (13)
  - Throat tightness [Recovered/Resolved]
  - Tremor [Recovered/Resolved]
  - Chest discomfort [Recovered/Resolved]
  - Throat irritation [Unknown]
  - Throat tightness [Unknown]
  - Pain in extremity [Unknown]
  - Tinnitus [Unknown]
  - Throat tightness [Unknown]
  - Dyspnoea [Unknown]
  - Dyspnoea [Unknown]
  - Erythema [Unknown]
  - Emotional distress [Unknown]
  - Stridor [Unknown]
